FAERS Safety Report 11812890 (Version 2)
Quarter: 2016Q1

REPORT INFORMATION
  Report Type: Spontaneous
  Country: IT (occurrence: IT)
  Receive Date: 20151209
  Receipt Date: 20160101
  Transmission Date: 20160525
  Serious: Yes (Hospitalization)
  Sender: FDA-Public Use
  Company Number: IT-AUROBINDO-AUR-APL-2015-11078

PATIENT
  Age: 48 Year
  Sex: Female

DRUGS (5)
  1. CYMBALTA [Suspect]
     Active Substance: DULOXETINE HYDROCHLORIDE
     Dosage: 5 DF,TOTAL
     Route: 048
     Dates: start: 20151121, end: 20051121
  2. RIVOTRIL [Suspect]
     Active Substance: CLONAZEPAM
     Indication: PRODUCT USED FOR UNKNOWN INDICATION
     Dosage: 6 DF TOTAL
     Route: 048
     Dates: start: 20151121, end: 20151121
  3. CITALOPRAM [Suspect]
     Active Substance: CITALOPRAM HYDROBROMIDE
     Indication: PRODUCT USED FOR UNKNOWN INDICATION
     Dosage: 100 MG TOTAL
     Route: 048
     Dates: start: 20151121, end: 20151121
  4. DEPAKIN CHRONO [Suspect]
     Active Substance: VALPROIC ACID
     Indication: PRODUCT USED FOR UNKNOWN INDICATION
     Dosage: 5 DF TOTAL
     Route: 048
     Dates: start: 20151121, end: 20151121
  5. CYMBALTA [Suspect]
     Active Substance: DULOXETINE HYDROCHLORIDE
     Indication: DEPRESSION
     Dosage: 5 DF TOTAL
     Route: 048
     Dates: start: 20151121, end: 20151121

REACTIONS (4)
  - Aggression [Recovered/Resolved]
  - Agitation [Recovered/Resolved]
  - Intentional self-injury [Recovered/Resolved]
  - Drug abuse [Recovered/Resolved]

NARRATIVE: CASE EVENT DATE: 20151121
